FAERS Safety Report 13672209 (Version 1)
Quarter: 2017Q2

REPORT INFORMATION
  Report Type: Spontaneous
  Country: US (occurrence: US)
  Receive Date: 20170620
  Receipt Date: 20170620
  Transmission Date: 20170830
  Serious: Yes (Other)
  Sender: FDA-Public Use
  Company Number: None

PATIENT
  Age: 57 Year
  Sex: Male
  Weight: 71.55 kg

DRUGS (7)
  1. VICODIN [Concomitant]
     Active Substance: ACETAMINOPHEN\HYDROCODONE BITARTRATE
  2. GABAPENTIN. [Concomitant]
     Active Substance: GABAPENTIN
  3. SUDAFED [Concomitant]
     Active Substance: PSEUDOEPHEDRINE HYDROCHLORIDE
  4. MULTIVITAMIN [Concomitant]
     Active Substance: VITAMINS
  5. BUPRENORPHINE TRABSDERMAL SYSTEM [Suspect]
     Active Substance: BUPRENORPHINE
     Indication: BACK PAIN
     Dosage: 1 PATCH WEEKLY TRANSDERMAL
     Route: 062
     Dates: start: 20170614, end: 20170616
  6. PNTROPAZOLE [Concomitant]
  7. CLONAZEPAM. [Concomitant]
     Active Substance: CLONAZEPAM

REACTIONS (24)
  - Feeling abnormal [None]
  - Dysarthria [None]
  - Chills [None]
  - Bedridden [None]
  - Dysstasia [None]
  - Fatigue [None]
  - Dysuria [None]
  - Wrong technique in product usage process [None]
  - Pyrexia [None]
  - Dyspnoea [None]
  - Headache [None]
  - Presyncope [None]
  - Nausea [None]
  - Muscle fatigue [None]
  - Vision blurred [None]
  - Abdominal pain upper [None]
  - Lid sulcus deepened [None]
  - Product substitution issue [None]
  - Hyperhidrosis [None]
  - Impaired driving ability [None]
  - Pallor [None]
  - Malaise [None]
  - Musculoskeletal disorder [None]
  - Dizziness [None]

NARRATIVE: CASE EVENT DATE: 20170617
